FAERS Safety Report 7283132-2 (Version None)
Quarter: 2011Q1

REPORT INFORMATION
  Report Type: 
  Country: None (occurrence: None)
  Receive Date: 20110209
  Receipt Date: 20101014
  Transmission Date: 20110831
  Serious: No
  Sender: FDA-Public Use
  Company Number: A0894763A

PATIENT
  Sex: Male

DRUGS (1)
  1. PAXIL CR [Suspect]
     Dosage: 25MG UNKNOWN
     Route: 065

REACTIONS (3)
  - IRRITABILITY [None]
  - INSOMNIA [None]
  - HEADACHE [None]
